FAERS Safety Report 5413359-3 (Version None)
Quarter: 2007Q3

REPORT INFORMATION
  Report Type: 
  Country: None (occurrence: None)
  Receive Date: 20070810
  Receipt Date: 20070716
  Transmission Date: 20080115
  Serious: Yes (Life-Threatening, Hospitalization)
  Sender: FDA-Public Use
  Company Number: 2006RR-01642

PATIENT
  Age: 12 Year
  Sex: Male

DRUGS (4)
  1. SERTRALINE [Suspect]
     Indication: DEPRESSION
     Dosage: 25 MG, QD,; 50 MG, QD,
  2. CLOMIPRAMINE HCL [Suspect]
     Indication: DEPRESSION
     Dosage: 25 MG, QD,
  3. AMITRIPTYLINE HCL [Concomitant]
  4. ALPRAZOLAM [Concomitant]

REACTIONS (5)
  - BLOOD BICARBONATE DECREASED [None]
  - DRUG INTERACTION [None]
  - HYPERNATRAEMIA [None]
  - LEUKOCYTOSIS [None]
  - SEROTONIN SYNDROME [None]
